FAERS Safety Report 19134311 (Version 1)
Quarter: 2021Q2

REPORT INFORMATION
  Report Type: Spontaneous
  Country: US (occurrence: US)
  Receive Date: 20210414
  Receipt Date: 20210414
  Transmission Date: 20210717
  Serious: No
  Sender: FDA-Public Use
  Company Number: US-BION-009121

PATIENT
  Sex: Female

DRUGS (1)
  1. ALEVE [Suspect]
     Active Substance: NAPROXEN SODIUM
     Indication: PAIN
     Dosage: DOSAGE: 2 TABLETS
     Route: 048
     Dates: start: 2011

REACTIONS (2)
  - Hyperhidrosis [Recovered/Resolved]
  - Incorrect product administration duration [Not Recovered/Not Resolved]
